FAERS Safety Report 22085127 (Version 1)
Quarter: 2023Q1

REPORT INFORMATION
  Report Type: Spontaneous
  Country: DE (occurrence: DE)
  Receive Date: 20230310
  Receipt Date: 20230310
  Transmission Date: 20230418
  Serious: Yes (Life-Threatening, Hospitalization, Disabling, Other)
  Sender: FDA-Public Use
  Company Number: DE-GUERBET-DE-20210024

PATIENT
  Sex: Female
  Weight: 60 kg

DRUGS (1)
  1. DOTAREM [Suspect]
     Active Substance: GADOTERATE MEGLUMINE
     Indication: Magnetic resonance imaging head
     Dosage: PRODUCT START DATE- 25-JUNE -2014
     Route: 065
     Dates: start: 2014, end: 2014

REACTIONS (7)
  - Thunderclap headache [Recovered/Resolved with Sequelae]
  - Loss of consciousness [Recovered/Resolved with Sequelae]
  - Paralysis [Not Recovered/Not Resolved]
  - Cerebral haemorrhage [Recovered/Resolved]
  - Skin cancer [Not Recovered/Not Resolved]
  - Fracture [Unknown]
  - Fall [Unknown]

NARRATIVE: CASE EVENT DATE: 20140101
